FAERS Safety Report 4282592-9 (Version None)
Quarter: 2004Q1

REPORT INFORMATION
  Report Type: 
  Country: None (occurrence: None)
  Receive Date: 20040130
  Receipt Date: 20020515
  Transmission Date: 20041129
  Serious: No
  Sender: FDA-Public Use
  Company Number: US-BRISTOL-MYERS SQUIBB COMPANY-11862786

PATIENT
  Age: 48 Year
  Sex: Male
  Weight: 75 kg

DRUGS (8)
  1. SERZONE [Suspect]
     Indication: DEPRESSION
     Dosage: STARTED 150 MG BID, THEN INCREASED TO 200 MG BID, THEN DISCONTINUED FEB-96.
     Route: 048
     Dates: start: 19950801, end: 19960201
  2. AMBIEN [Concomitant]
  3. ELAVIL [Concomitant]
  4. CALAN [Concomitant]
  5. ZOSTRIX [Concomitant]
  6. SOMA [Concomitant]
  7. DHEA [Concomitant]
  8. LOPRESSOR [Concomitant]

REACTIONS (4)
  - ERECTILE DYSFUNCTION [None]
  - GAMMA-GLUTAMYLTRANSFERASE ABNORMAL [None]
  - HEADACHE [None]
  - HEPATITIS ALCOHOLIC [None]
